FAERS Safety Report 4928221-X (Version None)
Quarter: 2006Q1

REPORT INFORMATION
  Report Type: 
  Country: None (occurrence: None)
  Receive Date: 20060228
  Receipt Date: 20060217
  Transmission Date: 20060701
  Serious: Yes (Hospitalization)
  Sender: FDA-Public Use
  Company Number: DE-SANOFI-SYNTHELABO-A04200600212

PATIENT
  Sex: Male
  Weight: 116 kg

DRUGS (2)
  1. PLAVIX [Suspect]
     Indication: CORONARY ARTERY DISEASE
     Route: 048
     Dates: start: 20050816, end: 20050826
  2. PLAVIX [Suspect]
     Indication: ATRIAL FIBRILLATION
     Route: 048
     Dates: start: 20050816, end: 20050826

REACTIONS (4)
  - CHOLESTASIS [None]
  - JAUNDICE [None]
  - LIVER DISORDER [None]
  - NAUSEA [None]
